FAERS Safety Report 4786282-5 (Version None)
Quarter: 2005Q3

REPORT INFORMATION
  Report Type: 
  Country: None (occurrence: None)
  Receive Date: 20050929
  Receipt Date: 20050621
  Transmission Date: 20060218
  Serious: Yes (Hospitalization)
  Sender: FDA-Public Use
  Company Number: 396158

PATIENT
  Age: 56 Year
  Sex: Male
  Weight: 82.1 kg

DRUGS (2)
  1. COPEGUS [Suspect]
     Indication: HEPATITIS C
     Dosage: 200 MG 5 PER DAY ORAL
     Route: 048
     Dates: start: 20041105, end: 20050209
  2. PEGASYS [Concomitant]

REACTIONS (1)
  - CELLULITIS [None]
